FAERS Safety Report 20532033 (Version 1)
Quarter: 2022Q1

REPORT INFORMATION
  Report Type: Report from Study
  Country: US (occurrence: US)
  Receive Date: 20220301
  Receipt Date: 20220301
  Transmission Date: 20220423
  Serious: No
  Sender: FDA-Public Use
  Company Number: US-AMRYT PHARMACEUTICALS DAC-AEGR005289

PATIENT
  Age: 16 Year
  Sex: Female
  Weight: 42.6 kg

DRUGS (7)
  1. MYALEPT [Suspect]
     Active Substance: METRELEPTIN
     Indication: Lipodystrophy acquired
     Dosage: 2.6 MILLIGRAM, QD
     Dates: start: 20190901
  2. MYALEPT [Suspect]
     Active Substance: METRELEPTIN
     Indication: Hormone level abnormal
     Dosage: 2.75 MILLIGRAM, QD
     Route: 058
     Dates: start: 201909
  3. LEVOTHYROXINE [Concomitant]
     Active Substance: LEVOTHYROXINE
     Indication: Autoimmune hypothyroidism
     Dosage: 88 MICROGRAM, QD
     Route: 048
     Dates: start: 20081024
  4. LIOTHYRONINE [Concomitant]
     Active Substance: LIOTHYRONINE
     Indication: Tri-iodothyronine decreased
     Dosage: 5 MICROGRAM, QD
     Route: 048
     Dates: start: 20150223
  5. SOMATROPIN [Concomitant]
     Active Substance: SOMATROPIN
     Indication: Growth hormone deficiency
     Dosage: 2.2 MILLIGRAM, QD
     Route: 058
     Dates: start: 20130315
  6. FLUOXETINE [Concomitant]
     Active Substance: FLUOXETINE HYDROCHLORIDE
     Indication: Anxiety
     Dosage: 20 MILLIGRAM, QD
     Route: 048
     Dates: start: 20180129
  7. METHYLPHENIDATE [Concomitant]
     Active Substance: METHYLPHENIDATE
     Indication: Attention deficit hyperactivity disorder
     Dosage: 36 MILLIGRAM, QD
     Route: 048
     Dates: start: 20170608

REACTIONS (5)
  - Drug ineffective [Unknown]
  - Hyperphagia [Recovering/Resolving]
  - Increased appetite [Recovering/Resolving]
  - Weight increased [Recovering/Resolving]
  - Glycosylated haemoglobin increased [Recovering/Resolving]

NARRATIVE: CASE EVENT DATE: 20210901
